FAERS Safety Report 8012243-9 (Version None)
Quarter: 2011Q4

REPORT INFORMATION
  Report Type: 
  Country: None (occurrence: None)
  Receive Date: 20111228
  Receipt Date: 20111208
  Transmission Date: 20120403
  Serious: Yes (Death)
  Sender: FDA-Public Use
  Company Number: AR-SANOFI-AVENTIS-2011SA080902

PATIENT
  Age: 69 Year
  Sex: Male
  Weight: 80.4 kg

DRUGS (2)
  1. DOCETAXEL [Suspect]
     Dosage: EVERY THREE WEEKS (DAY 1 OF 21 DAY CYCLE)
     Route: 042
     Dates: start: 20111111, end: 20111111
  2. BLINDED THERAPY [Suspect]
     Dosage: EVERY THREE WEEKS (DAY 1 OF 21 DAY CYCLE)
     Route: 042
     Dates: start: 20111111, end: 20111111

REACTIONS (1)
  - CARDIO-RESPIRATORY ARREST [None]
